FAERS Safety Report 5258054-9 (Version None)
Quarter: 2007Q1

REPORT INFORMATION
  Report Type: 
  Country: None (occurrence: None)
  Receive Date: 20070307
  Receipt Date: 20070221
  Transmission Date: 20070707
  Serious: Yes (Hospitalization, Other)
  Sender: FDA-Public Use
  Company Number: US-ELI_LILLY_AND_COMPANY-US200606005789

PATIENT
  Age: 77 Year
  Sex: Female

DRUGS (19)
  1. FORTEO [Suspect]
     Indication: OSTEOPOROSIS
     Dosage: UNK, UNK
     Dates: start: 20060624, end: 20061224
  2. FORTEO [Suspect]
  3. CALTRATE + D [Concomitant]
  4. LASIX [Concomitant]
     Dosage: 10 MG, DAILY (1/D)
  5. PREDNISONE [Concomitant]
  6. ACTONEL                                 /USA/ [Concomitant]
  7. EVISTA [Suspect]
     Indication: OSTEOPOROSIS
     Dosage: 60 MG, DAILY (1/D)
     Dates: start: 20040101
  8. COUMADIN [Concomitant]
     Dosage: 6 MG, DAILY (1/D)
  9. CALCIUM [Concomitant]
  10. PRILOSEC [Concomitant]
     Dosage: 20 MG, DAILY (1/D)
  11. AVANDIA [Concomitant]
     Dosage: 4 MG, 2/D
  12. ALTACE [Concomitant]
     Dosage: 2.5 MG, DAILY (1/D)
  13. SOLATOL [Concomitant]
     Dosage: 60 MG, EACH EVENING
  14. SOLATOL [Concomitant]
     Dosage: 40 MG, EACH EVENING
  15. VICODIN [Concomitant]
     Indication: SLEEP DISORDER THERAPY
  16. PERCOCET [Concomitant]
     Indication: PAIN
     Dosage: UNK, EACH EVENING
  17. LEXAPRO [Concomitant]
  18. CELEBREX [Concomitant]
  19. TRICOR [Concomitant]

REACTIONS (6)
  - ARTHRITIS [None]
  - CONSTIPATION [None]
  - FALL [None]
  - FEMUR FRACTURE [None]
  - HIP FRACTURE [None]
  - INJECTION SITE BRUISING [None]
